FAERS Safety Report 7617124-8 (Version None)
Quarter: 2011Q3

REPORT INFORMATION
  Report Type: 
  Country: None (occurrence: None)
  Receive Date: 20110718
  Receipt Date: 20110705
  Transmission Date: 20111222
  Serious: Yes (Other)
  Sender: FDA-Public Use
  Company Number: CA-JNJFOC-20110702358

PATIENT
  Sex: Male
  Weight: 84 kg

DRUGS (12)
  1. WARFARIN SODIUM [Concomitant]
     Route: 048
  2. REMICADE [Suspect]
     Indication: RHEUMATOID ARTHRITIS
     Dosage: 32 PRIOR INFLIXIMAB INFUSIONS
     Route: 042
  3. HYDROCORTISONE [Concomitant]
     Indication: PREMEDICATION
     Route: 042
     Dates: start: 20110705
  4. REMICADE [Suspect]
     Dosage: 33RD INFUSION
     Route: 042
     Dates: start: 20110524
  5. TYLENOL-500 [Concomitant]
     Indication: PREMEDICATION
     Route: 048
     Dates: start: 20110705
  6. METHOTREXATE [Concomitant]
     Route: 048
  7. NORVASC [Concomitant]
  8. SEROQUEL XR [Concomitant]
     Dosage: JUST STARTED
  9. GALANTAMINE HYDROBROMIDE [Concomitant]
  10. REMICADE [Suspect]
     Dosage: 34TH INFUSION
     Route: 042
     Dates: start: 20110705
  11. RAMIPRIL [Concomitant]
     Route: 048
  12. GARLIC [Concomitant]

REACTIONS (2)
  - AGGRESSION [None]
  - OEDEMA PERIPHERAL [None]
